FAERS Safety Report 8304655-0 (Version None)
Quarter: 2012Q2

REPORT INFORMATION
  Report Type: 
  Country: None (occurrence: None)
  Receive Date: 20120423
  Receipt Date: 20120418
  Transmission Date: 20120825
  Serious: Yes (Death)
  Sender: FDA-Public Use
  Company Number: PHEH2012US008264

PATIENT
  Sex: Male

DRUGS (4)
  1. AFINITOR [Suspect]
     Dosage: 10 MG, QD
     Route: 048
  2. OMEPRAZOLE [Concomitant]
     Dosage: 20 MG, UNK
  3. PHENERGAN HCL [Concomitant]
     Dosage: 25 MG, UNK
  4. MORPHINE SULFATE [Concomitant]
     Dosage: 15 MG, UNK

REACTIONS (1)
  - DEATH [None]
